FAERS Safety Report 9500416 (Version 1)
Quarter: 2013Q1

REPORT INFORMATION
  Report Type: Spontaneous
  Country: US (occurrence: None)
  Receive Date: 20130118
  Receipt Date: 20130118
  Transmission Date: 20140127
  Serious: Yes (Other)
  Sender: FDA-Public Use
  Company Number: A-NJ2012-64097

PATIENT
  Age: 49 Year
  Sex: Female

DRUGS (2)
  1. TRACLEER [Suspect]
     Indication: PULMONARY ARTERIAL HYPERTENSION
     Route: 048
     Dates: start: 20101020, end: 20120320
  2. TADALAFIL [Suspect]
     Dates: end: 201201

REACTIONS (6)
  - Liver function test abnormal [None]
  - Pulmonary arterial hypertension [None]
  - Abdominal discomfort [None]
  - Headache [None]
  - Aspartate aminotransferase increased [None]
  - Alanine aminotransferase increased [None]
